FAERS Safety Report 13650813 (Version 1)
Quarter: 2017Q2

REPORT INFORMATION
  Report Type: Spontaneous
  Country: US (occurrence: US)
  Receive Date: 20170614
  Receipt Date: 20170614
  Transmission Date: 20170830
  Serious: Yes (Life-Threatening, Hospitalization)
  Sender: FDA-Public Use
  Company Number: None

PATIENT

DRUGS (3)
  1. CHLORHEXIDINE GLUCONATE ORAL SOLUTION [Suspect]
     Active Substance: CHLORHEXIDINE GLUCONATE
  2. NASAL SPRAY [Concomitant]
     Active Substance: UNSPECIFIED INGREDIENT
  3. VICS CHEST RUB [Concomitant]

REACTIONS (1)
  - Lung disorder [None]

NARRATIVE: CASE EVENT DATE: 20160127
